FAERS Safety Report 8496168-0 (Version None)
Quarter: 2012Q3

REPORT INFORMATION
  Report Type: 
  Country: None (occurrence: None)
  Receive Date: 20120709
  Receipt Date: 20120703
  Transmission Date: 20120928
  Serious: Yes (Death, Hospitalization)
  Sender: FDA-Public Use
  Company Number: PHHY2012DE057005

PATIENT
  Age: 51 Year
  Sex: Male

DRUGS (3)
  1. PREDNISOLONE [Suspect]
     Indication: LIVER INJURY
  2. URSODIOL [Suspect]
     Indication: LIVER INJURY
  3. SILYMARIN [Suspect]
     Indication: LIVER INJURY

REACTIONS (5)
  - VERTIGO [None]
  - GAIT DISTURBANCE [None]
  - NEOPLASM MALIGNANT [None]
  - HEPATITIS CHOLESTATIC [None]
  - DRUG INEFFECTIVE [None]
